FAERS Safety Report 23615617 (Version 4)
Quarter: 2024Q1

REPORT INFORMATION
  Report Type: Spontaneous
  Country: BR (occurrence: BR)
  Receive Date: 20240311
  Receipt Date: 20240328
  Transmission Date: 20240410
  Serious: Yes (Other)
  Sender: FDA-Public Use
  Company Number: BR-UCBSA-2024011502

PATIENT
  Sex: Female

DRUGS (4)
  1. KEPPRA [Suspect]
     Active Substance: LEVETIRACETAM
     Indication: Epilepsy
     Dosage: 15 MILLILITER, 2X/DAY (BID)
     Dates: start: 2019
  2. KEPPRA [Suspect]
     Active Substance: LEVETIRACETAM
     Dosage: 20 MILLILITER, 2X/DAY (BID)
  3. LAMOTRIGINE [Concomitant]
     Active Substance: LAMOTRIGINE
     Indication: Seizure
     Dosage: 50 MILLIGRAM, 2X/12 HOURS
  4. MIRENA [Concomitant]
     Active Substance: LEVONORGESTREL
     Indication: Contraception
     Dosage: UNK, FOR 10 YEARS

REACTIONS (9)
  - Seizure [Recovered/Resolved]
  - Near death experience [Unknown]
  - Clavicle fracture [Recovered/Resolved]
  - Fall [Recovered/Resolved]
  - Drug ineffective [Unknown]
  - Product physical issue [Unknown]
  - Product taste abnormal [Unknown]
  - Prescribed overdose [Unknown]
  - Adverse reaction [Unknown]
